FAERS Safety Report 20186137 (Version 5)
Quarter: 2022Q2

REPORT INFORMATION
  Report Type: Report from Study
  Country: KR (occurrence: None)
  Receive Date: 20211215
  Receipt Date: 20220418
  Transmission Date: 20220721
  Serious: Yes (Other)
  Sender: FDA-Public Use
  Company Number: KR-ROCHE-2940806

PATIENT
  Age: 83 Year
  Sex: Male
  Weight: 60 kg

DRUGS (16)
  1. FARICIMAB [Suspect]
     Active Substance: FARICIMAB
     Indication: Macular oedema
     Dosage: START DATE OF MOST RECENT DOSE OF STUDY DRUG PRIOR TO AE AND SAE ON 17/SEP/2021 AT 12: 12 PM
     Route: 050
     Dates: start: 20210917
  2. AFLIBERCEPT [Suspect]
     Active Substance: AFLIBERCEPT
     Indication: Macular oedema
     Dosage: START DATE OF MOST RECENT DOSE OF STUDY DRUG PRIOR TO AE AND SAE ON 17/SEP/2021 AT 12: 12 PM
     Route: 050
     Dates: start: 20210917
  3. RANIBIZUMAB [Suspect]
     Active Substance: RANIBIZUMAB
     Indication: Macular oedema
     Dosage: ON 27/JUL/2021 AT 5:07 PM, HE RECEIVED THE MOST RECENT DOSE OF RANIBIZUMAB PRIOR TO AE AND SAE ONSET
     Route: 050
  4. ENTELON [Concomitant]
     Indication: Retinal vein occlusion
     Route: 048
     Dates: start: 20210803
  5. VIGAMOX [Concomitant]
     Active Substance: MOXIFLOXACIN HYDROCHLORIDE
     Indication: Eye infection
     Route: 047
     Dates: start: 20210914
  6. VIGAMOX [Concomitant]
     Active Substance: MOXIFLOXACIN HYDROCHLORIDE
     Indication: Prophylaxis
  7. OLMESARTAN MEDOXOMIL [Concomitant]
     Active Substance: OLMESARTAN MEDOXOMIL
     Indication: Hypertension
     Route: 048
     Dates: start: 20200608
  8. OMACOR [Concomitant]
     Active Substance: OMEGA-3-ACID ETHYL ESTERS
     Indication: Cerebral infarction
     Route: 048
     Dates: start: 20200608
  9. CHOLINE ALFOSCERATE [Concomitant]
     Active Substance: CHOLINE ALFOSCERATE
     Indication: Cerebral infarction
     Route: 048
     Dates: start: 20200608
  10. ATORVASTATIN [Concomitant]
     Active Substance: ATORVASTATIN
     Indication: Cerebral infarction
     Route: 048
     Dates: start: 20210906
  11. PLAVITOR [Concomitant]
     Indication: Cerebral infarction
     Route: 048
     Dates: start: 20210906
  12. ITOPRIDE [Concomitant]
     Active Substance: ITOPRIDE
     Indication: Chronic obstructive pulmonary disease
     Route: 048
     Dates: start: 20200608
  13. DOXOFYLLINE [Concomitant]
     Active Substance: DOXOFYLLINE
     Indication: Chronic obstructive pulmonary disease
     Route: 048
     Dates: start: 20200608
  14. SURFOLASE [Concomitant]
     Indication: Chronic obstructive pulmonary disease
     Route: 048
     Dates: start: 20200608
  15. INCRUSE ELLIPTA [Concomitant]
     Active Substance: UMECLIDINIUM BROMIDE
     Indication: Chronic obstructive pulmonary disease
     Route: 055
     Dates: start: 20200608
  16. VENTOLIN [Concomitant]
     Active Substance: ALBUTEROL SULFATE
     Indication: Chronic obstructive pulmonary disease
     Route: 055
     Dates: start: 20200928

REACTIONS (1)
  - Retinal vein occlusion [Not Recovered/Not Resolved]

NARRATIVE: CASE EVENT DATE: 20211018
